FAERS Safety Report 21177910 (Version 10)
Quarter: 2023Q1

REPORT INFORMATION
  Report Type: Report from Study
  Country: US (occurrence: US)
  Receive Date: 20220805
  Receipt Date: 20230330
  Transmission Date: 20230418
  Serious: Yes (Hospitalization, Other)
  Sender: FDA-Public Use
  Company Number: US-BIOVITRUM-2022US08784

PATIENT
  Age: 48 Year
  Sex: Female

DRUGS (2)
  1. DOPTELET [Suspect]
     Active Substance: AVATROMBOPAG MALEATE
     Indication: Immune thrombocytopenia
     Dosage: UNKNOWN -FROM ANOTHER PHARMACY; 31-JAN-2022 -BIOLOGICS. DAILY
     Route: 048
     Dates: start: 20220131
  2. DOPTELET [Suspect]
     Active Substance: AVATROMBOPAG MALEATE
     Route: 048
     Dates: start: 20220131

REACTIONS (13)
  - Platelet count decreased [Unknown]
  - Gastrointestinal haemorrhage [Unknown]
  - Spinal stenosis [Unknown]
  - Hydronephrosis [Unknown]
  - Drug ineffective [Unknown]
  - Product dose omission issue [Unknown]
  - Emotional disorder [Unknown]
  - Headache [Unknown]
  - Migraine [Unknown]
  - Back pain [Unknown]
  - Muscle spasms [Recovering/Resolving]
  - Muscle strain [Unknown]
  - Loss of personal independence in daily activities [Unknown]
